FAERS Safety Report 5879386-7 (Version None)
Quarter: 2008Q3

REPORT INFORMATION
  Report Type: 
  Country: None (occurrence: None)
  Receive Date: 20080912
  Receipt Date: 20080908
  Transmission Date: 20090109
  Serious: Yes (Other)
  Sender: FDA-Public Use
  Company Number: B0510138A

PATIENT
  Age: 77 Year
  Sex: Male

DRUGS (9)
  1. REQUIP [Suspect]
     Indication: PARKINSON'S DISEASE
     Dosage: .25MG THREE TIMES PER DAY
     Route: 048
     Dates: start: 20080125, end: 20080225
  2. EC DOPARL [Concomitant]
     Route: 048
  3. ASPIRIN [Concomitant]
     Route: 048
  4. FERROMIA [Concomitant]
     Route: 048
  5. BLOPRESS [Concomitant]
     Route: 048
  6. PLAVIX [Concomitant]
     Route: 048
  7. SUNRYTHM [Concomitant]
  8. RABEPRAZOLE SODIUM [Concomitant]
     Route: 048
  9. HARNAL [Concomitant]
     Route: 048

REACTIONS (2)
  - LOSS OF CONSCIOUSNESS [None]
  - SUDDEN ONSET OF SLEEP [None]
